FAERS Safety Report 12374776 (Version 3)
Quarter: 2017Q3

REPORT INFORMATION
  Report Type: Spontaneous
  Country: US (occurrence: US)
  Receive Date: 20160517
  Receipt Date: 20170712
  Transmission Date: 20171127
  Serious: Yes (Hospitalization, Other)
  Sender: FDA-Public Use
  Company Number: US-PFIZER INC-2016236908

PATIENT
  Age: 73 Year
  Sex: Female
  Weight: 65.77 kg

DRUGS (11)
  1. CELEBREX [Suspect]
     Active Substance: CELECOXIB
     Indication: ARTHRITIS
     Dosage: 200MG, TABLETS, ONE A DAY IN THE MORNING
     Route: 048
     Dates: end: 201604
  2. ASPIRIN. [Concomitant]
     Active Substance: ASPIRIN
     Dosage: TAKING A LOW DOSE EVERY NIGHT
  3. METOPROLOL SUCCINATE. [Concomitant]
     Active Substance: METOPROLOL SUCCINATE
     Dosage: 25 MG, DAILY
  4. LOSARTAN. [Concomitant]
     Active Substance: LOSARTAN
     Dosage: 1 DF ( 50), DAILY
  5. FUROSEMIDE. [Concomitant]
     Active Substance: FUROSEMIDE
     Dosage: 20 MG, 1X/DAY
  6. CLOPIDOGREL [Concomitant]
     Active Substance: CLOPIDOGREL BISULFATE
     Indication: BLOOD PRESSURE ABNORMAL
     Dosage: ONE PILL
  7. PRAVASTATIN. [Concomitant]
     Active Substance: PRAVASTATIN
     Dosage: 20 MG, DAILY
  8. LOSARTAN. [Concomitant]
     Active Substance: LOSARTAN
     Indication: BLOOD PRESSURE ABNORMAL
     Dosage: 12.5 MG, DAILY
  9. CALTRATE [Concomitant]
     Active Substance: CALCIUM CARBONATE
     Dosage: 1 DF, DAILY (300)
  10. ASPIRIN. [Concomitant]
     Active Substance: ASPIRIN
     Dosage: 81 MG, 1X/DAY
  11. AMLODIPINE [Concomitant]
     Active Substance: AMLODIPINE BESYLATE
     Dosage: 5 MG, 2X/DAY

REACTIONS (11)
  - Pain in extremity [Not Recovered/Not Resolved]
  - Pain [Not Recovered/Not Resolved]
  - Conversion disorder [Unknown]
  - Fatigue [Unknown]
  - Cardiac disorder [Unknown]
  - Gastrointestinal haemorrhage [Unknown]
  - Musculoskeletal pain [Not Recovered/Not Resolved]
  - Loss of personal independence in daily activities [Not Recovered/Not Resolved]
  - Dyspnoea [Unknown]
  - Renal disorder [Unknown]
  - Mobility decreased [Unknown]

NARRATIVE: CASE EVENT DATE: 1998
